FAERS Safety Report 8190827-5 (Version None)
Quarter: 2012Q1

REPORT INFORMATION
  Report Type: 
  Country: None (occurrence: None)
  Receive Date: 20120221
  Receipt Date: 20111027
  Transmission Date: 20120608
  Serious: No
  Sender: FDA-Public Use
  Company Number: 1000025016

PATIENT
  Age: 53 Year
  Sex: Female

DRUGS (3)
  1. HYDROCODONE (HYDROCODONE) ( HYDROCODONE) [Concomitant]
  2. FLEXERIL (CYCLOBENZAPRINE) (CYCLOBENZAPRINE) [Concomitant]
  3. VIIBRYD [Suspect]
     Indication: DEPRESSION
     Dosage: 10 MG (10 MG, 1 IN 1 D),ORAL
     Route: 048
     Dates: start: 20111024

REACTIONS (1)
  - NAUSEA [None]
